FAERS Safety Report 5573905-6 (Version None)
Quarter: 2007Q4

REPORT INFORMATION
  Report Type: 
  Country: None (occurrence: None)
  Receive Date: 20071220
  Receipt Date: 20071205
  Transmission Date: 20080405
  Serious: Yes (Death)
  Sender: FDA-Public Use
  Company Number: OSCN-PR-0712S-0492

PATIENT
  Sex: Female

DRUGS (4)
  1. OMNISCAN [Suspect]
     Indication: DRUG USE FOR UNKNOWN INDICATION
     Dosage: SINGLE DOSE, I.V, SINGLE DOSE, I.V, SINGLE DOSE, I.V,
     Route: 042
     Dates: start: 20050603, end: 20050603
  2. OMNISCAN [Suspect]
     Indication: DRUG USE FOR UNKNOWN INDICATION
     Dosage: SINGLE DOSE, I.V, SINGLE DOSE, I.V, SINGLE DOSE, I.V,
     Route: 042
     Dates: start: 20051119, end: 20051119
  3. OMNISCAN [Suspect]
     Indication: DRUG USE FOR UNKNOWN INDICATION
     Dosage: SINGLE DOSE, I.V, SINGLE DOSE, I.V, SINGLE DOSE, I.V,
     Route: 042
     Dates: start: 20051220, end: 20051220
  4. DADOPENTETATE DIMEGLUMINE (MAGNEVIST) [Concomitant]

REACTIONS (3)
  - ATRIAL FIBRILLATION [None]
  - NEPHROGENIC SYSTEMIC FIBROSIS [None]
  - RESPIRATORY FAILURE [None]
